FAERS Safety Report 12414681 (Version 1)
Quarter: 2016Q2

REPORT INFORMATION
  Report Type: Spontaneous
  Country: CH (occurrence: CH)
  Receive Date: 20160528
  Receipt Date: 20160528
  Transmission Date: 20160815
  Serious: Yes (Other)
  Sender: FDA-Public Use
  Company Number: CH-009507513-1605CHE012572

PATIENT
  Sex: Female

DRUGS (1)
  1. SITAGLIPTIN PHOSPHATE [Suspect]
     Active Substance: SITAGLIPTIN PHOSPHATE
     Dosage: UNK

REACTIONS (3)
  - Hepatic enzyme abnormal [Recovered/Resolved]
  - Pancreatitis [Unknown]
  - Abdominal pain [Recovered/Resolved]
